FAERS Safety Report 9125549 (Version 2)
Quarter: 2014Q1

REPORT INFORMATION
  Report Type: Spontaneous
  Country: US (occurrence: US)
  Receive Date: 20130121
  Receipt Date: 20140129
  Transmission Date: 20141002
  Serious: Yes (Hospitalization)
  Sender: FDA-Public Use
  Company Number: US-GLAXOSMITHKLINE-A1008214A

PATIENT
  Age: 55 Year
  Sex: Female

DRUGS (31)
  1. ADVAIR [Suspect]
     Indication: ASTHMA
     Dosage: 1PUFF TWICE PER DAY
     Route: 055
     Dates: start: 200104
  2. CEFUROXIME AXETIL [Suspect]
     Indication: PROPHYLAXIS
     Dosage: 500MG TWICE PER DAY
     Route: 048
     Dates: end: 20130103
  3. TYLENOL [Suspect]
     Indication: PROPHYLAXIS
     Route: 065
     Dates: end: 20130103
  4. PANTOPRAZOLE [Suspect]
     Indication: PRODUCT USED FOR UNKNOWN INDICATION
     Route: 065
  5. LEVAQUIN [Concomitant]
  6. ARTHROTEC [Concomitant]
  7. ULTRAM [Concomitant]
  8. XANAX [Concomitant]
  9. TRAZODONE [Concomitant]
  10. FLEXERIL [Concomitant]
  11. VALIUM [Concomitant]
  12. LEXAPRO [Concomitant]
  13. SINGULAR [Concomitant]
  14. PROVENTIL HFA [Concomitant]
  15. UNKNOWN [Concomitant]
  16. VANTIN [Concomitant]
  17. ALBUTEROL NEBULIZER [Concomitant]
  18. ALLEGRA D [Concomitant]
  19. ATARAX [Concomitant]
  20. LIDOCAINE [Concomitant]
  21. TENS UNIT [Concomitant]
  22. ENULOSE [Concomitant]
  23. POTASSIUM [Concomitant]
  24. MULTI VITAMIN [Concomitant]
  25. CALCIUM [Concomitant]
  26. ACIDOPHILUS [Concomitant]
  27. DOCUSATE SODIUM [Concomitant]
  28. ASPIRIN [Concomitant]
  29. FISH OIL [Concomitant]
  30. GAMMA GLOBULIN [Concomitant]
     Route: 042
  31. ANTIBIOTICS [Concomitant]

REACTIONS (5)
  - Pneumonia [Unknown]
  - Dysphonia [Not Recovered/Not Resolved]
  - Hepatic enzyme increased [Unknown]
  - Drug ineffective [Not Recovered/Not Resolved]
  - Immune system disorder [Unknown]
